FAERS Safety Report 6549056-0 (Version None)
Quarter: 2010Q1

REPORT INFORMATION
  Report Type: 
  Country: None (occurrence: None)
  Receive Date: 20100105
  Receipt Date: 20100105
  Transmission Date: 20100710
  Serious: Yes (Hospitalization)
  Sender: FDA-Public Use
  Company Number: 2009-04455

PATIENT
  Age: 68 Year
  Sex: Male
  Weight: 95.7 kg

DRUGS (9)
  1. VELCADE [Suspect]
     Indication: MULTIPLE MYELOMA
     Dosage: 1.3 MG/M2 CYCLIC, INTRAVENOUS
     Route: 042
     Dates: start: 20091009, end: 20091019
  2. THALIDOMIDE [Suspect]
     Indication: MULTIPLE MYELOMA
     Dosage: 200 MG, CYCLIC ORAL
     Route: 048
     Dates: start: 20091009, end: 20091022
  3. DEXAMETHASONE [Suspect]
     Indication: MULTIPLE MYELOMA
     Dosage: 20 MG, CYCLIC, ORAL
     Route: 048
     Dates: start: 20091009, end: 20091020
  4. ASPIRIN [Concomitant]
  5. LIPITOR [Concomitant]
  6. FEXERIL (CYCLOBENZAPRINE HYDROCHLORIDE) [Concomitant]
  7. ACIPHEX [Concomitant]
  8. ERGOCALCIFEROL [Concomitant]
  9. HYDROCHLOROTHIAZIDE [Concomitant]

REACTIONS (5)
  - HAEMATOCRIT DECREASED [None]
  - HAEMATURIA [None]
  - HAEMOGLOBIN DECREASED [None]
  - PERIORBITAL CELLULITIS [None]
  - PLATELET COUNT DECREASED [None]
